FAERS Safety Report 18571690 (Version 1)
Quarter: 2020Q4

REPORT INFORMATION
  Report Type: Report from Study
  Country: US (occurrence: US)
  Receive Date: 20201202
  Receipt Date: 20201202
  Transmission Date: 20210114
  Serious: Yes (Hospitalization, Other)
  Sender: FDA-Public Use
  Company Number: US-TAKEDA-US202027334

PATIENT
  Age: 68 Year
  Sex: Male

DRUGS (1)
  1. HUMAN NORMAL IMMUNOGLOBULIN; LIQUID 20 [Suspect]
     Active Substance: HUMAN IMMUNOGLOBULIN G
     Indication: PRIMARY IMMUNODEFICIENCY SYNDROME
     Dosage: 23 GRAM, 1X/2WKS
     Route: 065

REACTIONS (17)
  - Dehydration [Unknown]
  - Dizziness [Unknown]
  - Dyspnoea [Unknown]
  - Tonsillar hypertrophy [Unknown]
  - Pulmonary hypertension [Unknown]
  - Lymphoedema [Unknown]
  - Aphonia [Unknown]
  - Sinusitis [Unknown]
  - Condition aggravated [Unknown]
  - Skin infection [Unknown]
  - Stress [Unknown]
  - Rash macular [Unknown]
  - Dry skin [Unknown]
  - Crying [Unknown]
  - Lymphadenopathy [Unknown]
  - Petechiae [Unknown]
  - Skin atrophy [Unknown]

NARRATIVE: CASE EVENT DATE: 20200821
